FAERS Safety Report 13763215 (Version 1)
Quarter: 2017Q3

REPORT INFORMATION
  Report Type: Spontaneous
  Country: US (occurrence: US)
  Receive Date: 20170718
  Receipt Date: 20170718
  Transmission Date: 20171127
  Serious: Yes (Other)
  Sender: FDA-Public Use
  Company Number: US-ELI_LILLY_AND_COMPANY-US201707003039

PATIENT
  Age: 68 Year
  Sex: Female

DRUGS (2)
  1. CALCIUM                            /02801801/ [Concomitant]
     Indication: PRODUCT USED FOR UNKNOWN INDICATION
     Dosage: UNK, UNKNOWN
     Route: 065
     Dates: start: 1977
  2. EVISTA [Suspect]
     Active Substance: RALOXIFENE HYDROCHLORIDE
     Indication: OSTEOPENIA
     Dosage: 60 MG, UNKNOWN
     Route: 048
     Dates: start: 2000, end: 2012

REACTIONS (4)
  - Posture abnormal [Unknown]
  - Off label use [Unknown]
  - Bursitis [Unknown]
  - Body height decreased [Unknown]

NARRATIVE: CASE EVENT DATE: 2000
